FAERS Safety Report 6318503-1 (Version None)
Quarter: 2009Q3

REPORT INFORMATION
  Report Type: 
  Country: None (occurrence: None)
  Receive Date: 20090821
  Receipt Date: 20090812
  Transmission Date: 20100115
  Serious: Yes (Other)
  Sender: FDA-Public Use
  Company Number: US-ABBOTT-08P-163-0487472-00

PATIENT
  Age: 31 Year
  Sex: Female
  Weight: 61.29 kg

DRUGS (2)
  1. LUPRON DEPOT [Suspect]
     Indication: IN VITRO FERTILISATION
     Route: 030
     Dates: start: 20080831, end: 20080831
  2. VITAMIN TAB [Concomitant]
     Indication: PREGNANCY
     Route: 048

REACTIONS (4)
  - AMENORRHOEA [None]
  - INTRA-UTERINE DEATH [None]
  - MENSTRUAL DISORDER [None]
  - METRORRHAGIA [None]
